FAERS Safety Report 15401804 (Version 3)
Quarter: 2021Q3

REPORT INFORMATION
  Report Type: Report from Study
  Country: JP (occurrence: JP)
  Receive Date: 20180919
  Receipt Date: 20210917
  Transmission Date: 20211014
  Serious: Yes (Death, Hospitalization, Disabling, Other)
  Sender: FDA-Public Use
  Company Number: JP-B.I. PHARMACEUTICALS,INC./RIDGEFIELD-2018-NB-005031

PATIENT
  Age: 78 Year
  Sex: Female

DRUGS (5)
  1. ROSUVASTATIN [ROSUVASTATIN CALCIUM] [Concomitant]
     Active Substance: ROSUVASTATIN CALCIUM
     Indication: PRODUCT USED FOR UNKNOWN INDICATION
     Route: 065
     Dates: end: 20180705
  2. SYMBICORT [Concomitant]
     Active Substance: BUDESONIDE\FORMOTEROL FUMARATE DIHYDRATE
     Indication: PRODUCT USED FOR UNKNOWN INDICATION
     Route: 065
     Dates: end: 20180705
  3. FUROSEMIDE. [Concomitant]
     Active Substance: FUROSEMIDE
     Indication: PRODUCT USED FOR UNKNOWN INDICATION
     Route: 065
     Dates: end: 20180705
  4. SPIRONOLACTONE. [Concomitant]
     Active Substance: SPIRONOLACTONE
     Indication: PRODUCT USED FOR UNKNOWN INDICATION
     Route: 065
     Dates: end: 20180705
  5. PRIZBIND [Suspect]
     Active Substance: IDARUCIZUMAB
     Indication: PROCOAGULANT THERAPY
     Route: 042
     Dates: start: 20180705, end: 20180705

REACTIONS (3)
  - Multiple organ dysfunction syndrome [Fatal]
  - Mitral valve incompetence [Fatal]
  - Cardiac failure [Fatal]

NARRATIVE: CASE EVENT DATE: 20180704
